FAERS Safety Report 6730310-4 (Version None)
Quarter: 2010Q2

REPORT INFORMATION
  Report Type: 
  Country: None (occurrence: None)
  Receive Date: 20100514
  Receipt Date: 20100504
  Transmission Date: 20101027
  Serious: Yes (Disabling, Other)
  Sender: FDA-Public Use
  Company Number: IDR-00349

PATIENT
  Age: 15 Year
  Sex: Female

DRUGS (4)
  1. INDERAL LA [Suspect]
     Indication: AUTONOMIC NEUROPATHY
     Dosage: 80 MG, ONCE DAILY, ORAL
     Route: 048
     Dates: start: 19981111
  2. PROPRANOLOL [Suspect]
     Indication: SYNCOPE
     Dosage: 80 MG
  3. BIRTH CONTROL PILL [Suspect]
     Indication: ANHIDROSIS
  4. ANTIBIOTIC (UNKNOWN BRAND) [Suspect]

REACTIONS (5)
  - CARDIAC ARREST [None]
  - EXTRASYSTOLES [None]
  - FALL [None]
  - HEART RATE DECREASED [None]
  - LOSS OF CONSCIOUSNESS [None]
